FAERS Safety Report 6350227-7 (Version None)
Quarter: 2009Q3

REPORT INFORMATION
  Report Type: 
  Country: None (occurrence: None)
  Receive Date: 20090911
  Receipt Date: 20090622
  Transmission Date: 20100115
  Serious: No
  Sender: FDA-Public Use
  Company Number: US-ABBOTT-07P-163-0357533-00

PATIENT
  Sex: Male
  Weight: 79.45 kg

DRUGS (12)
  1. HUMIRA [Suspect]
     Indication: RHEUMATOID ARTHRITIS
     Route: 058
     Dates: start: 20070124
  2. GLUCOSAMINE [Concomitant]
     Indication: ARTHROPATHY
     Route: 048
  3. METHOTREXATE [Concomitant]
     Indication: RHEUMATOID ARTHRITIS
     Route: 048
  4. FOLIC ACID [Concomitant]
     Indication: VITAMIN SUPPLEMENTATION
     Route: 048
  5. PRAVASTATIN [Concomitant]
     Indication: BLOOD CHOLESTEROL
     Route: 048
  6. HYDROXYZINE [Concomitant]
     Indication: SINUS DISORDER
     Route: 048
  7. LEVOTHYROXINE SODIUM [Concomitant]
     Indication: HYPOTHYROIDISM
     Route: 048
  8. TRAZODONE HCL [Concomitant]
     Indication: TENSION
     Route: 048
  9. ALLOPURINOL [Concomitant]
     Indication: GOUT
     Route: 048
  10. FLUOXETINE HCL [Concomitant]
     Indication: ANXIOLYTIC THERAPY
     Route: 048
  11. ESOMEPRAZOLE [Concomitant]
     Indication: DYSPEPSIA
     Route: 048
  12. NABUMETONE [Concomitant]
     Indication: INFLAMMATION
     Route: 048

REACTIONS (1)
  - INCORRECT DOSE ADMINISTERED [None]
